FAERS Safety Report 4708937-0 (Version None)
Quarter: 2005Q3

REPORT INFORMATION
  Report Type: 
  Country: None (occurrence: None)
  Receive Date: 20050705
  Receipt Date: 20050620
  Transmission Date: 20060218
  Serious: Yes (Hospitalization)
  Sender: FDA-Public Use
  Company Number: 2005092054

PATIENT
  Age: 49 Year
  Sex: Female
  Weight: 110 kg

DRUGS (8)
  1. EPIRUBICIN [Suspect]
     Indication: ILL-DEFINED DISORDER
     Dates: start: 20040224
  2. CYCLOPHOSPHAMIDE [Suspect]
     Indication: BREAST CANCER
     Dosage: (750 MG/M*2, ), INTRAVENOUS
     Route: 042
     Dates: start: 20050318
  3. METHOTREXATE [Suspect]
     Indication: BREAST CANCER
     Dosage: (51 MG/M* 2), INTRAVENOUS
     Route: 042
     Dates: start: 20050318
  4. FLUOROURACIL [Suspect]
     Indication: BREAST CANCER
     Dosage: (600 MG/M*2), INTRAVENOUS
     Route: 042
     Dates: start: 20050318
  5. LANSOPRAZOLE [Concomitant]
  6. WARFARIN SODIUM [Concomitant]
  7. BECLOMETHAOSNE (BECLOMETHASONE0 [Concomitant]
  8. CYCLIZINE (CYCLIZINE) [Concomitant]

REACTIONS (8)
  - CHILLS [None]
  - CONFUSIONAL STATE [None]
  - LEUKOPENIA [None]
  - NAUSEA [None]
  - NEUTROPENIA [None]
  - PYREXIA [None]
  - THROMBOCYTOPENIA [None]
  - VOMITING [None]
